FAERS Safety Report 10080511 (Version 2)
Quarter: 2014Q2

REPORT INFORMATION
  Report Type: Spontaneous
  Country: JP (occurrence: JP)
  Receive Date: 20140416
  Receipt Date: 20140416
  Transmission Date: 20141212
  Serious: Yes (Life-Threatening)
  Sender: FDA-Public Use
  Company Number: JP-ROCHE-1339654

PATIENT
  Age: 81 Year
  Sex: Female
  Weight: 49 kg

DRUGS (25)
  1. ACTEMRA [Suspect]
     Indication: RHEUMATOID ARTHRITIS
     Route: 041
     Dates: start: 20130529, end: 20130529
  2. ACTEMRA [Suspect]
     Indication: RHEUMATOID ARTHRITIS
  3. ACTEMRA [Suspect]
     Indication: RHEUMATOID ARTHRITIS
  4. ACTEMRA [Suspect]
     Indication: RHEUMATOID ARTHRITIS
     Route: 058
     Dates: start: 20130628, end: 201401
  5. ACTEMRA [Suspect]
     Indication: RHEUMATOID ARTHRITIS
     Route: 058
     Dates: start: 20140207
  6. ACTEMRA [Suspect]
     Indication: RHEUMATOID ARTHRITIS
  7. VONAFEC [Suspect]
     Indication: RHEUMATOID ARTHRITIS
     Route: 054
     Dates: end: 20140110
  8. FLUITRAN [Suspect]
     Indication: PRODUCT USED FOR UNKNOWN INDICATION
     Dosage: DOSAGE IS UNCERTAIN.
     Route: 065
     Dates: start: 20130613, end: 20130625
  9. PROGRAF [Suspect]
     Indication: RHEUMATOID ARTHRITIS
     Dosage: 1-2MG
     Route: 048
     Dates: end: 20130531
  10. METHOTREXATE [Concomitant]
     Dosage: DOSAGE IS UNCERTAIN.
     Route: 048
  11. CLARITIN [Concomitant]
     Indication: PRURITUS
     Route: 048
     Dates: end: 20140110
  12. PRAVASTATIN SODIUM [Concomitant]
     Indication: HYPERLIPIDAEMIA
     Route: 048
     Dates: end: 20140110
  13. TAKEPRON [Concomitant]
     Indication: PROPHYLAXIS
     Route: 048
  14. ADALAT [Concomitant]
     Indication: HYPERTENSION
     Dosage: MORNING 40MGX1, EVENING 20MGX1
     Route: 048
  15. MAINTATE [Concomitant]
     Indication: HYPERTENSION
     Route: 048
  16. PANALDINE [Concomitant]
     Route: 048
  17. ZYLORIC [Concomitant]
     Indication: HYPERURICAEMIA
     Route: 048
     Dates: end: 20140110
  18. CARDENALIN [Concomitant]
     Indication: HYPERTENSION
     Route: 048
     Dates: end: 20140110
  19. PREDNISOLONE [Concomitant]
     Indication: RHEUMATOID ARTHRITIS
     Dosage: 2-10MG
     Route: 048
  20. RHYTHMY [Concomitant]
     Indication: INSOMNIA
     Route: 048
     Dates: start: 20130530, end: 20140110
  21. EVISTA [Concomitant]
     Indication: OSTEOPOROSIS
     Route: 048
     Dates: start: 20130530, end: 20140110
  22. PURSENNID [Concomitant]
     Indication: CONSTIPATION
     Route: 048
     Dates: start: 20130531, end: 20140110
  23. CLARITH [Concomitant]
     Route: 048
     Dates: end: 20140110
  24. FUROSEMIDE [Concomitant]
     Indication: PROPHYLAXIS
     Route: 048
     Dates: start: 20130613, end: 20140110
  25. MICARDIS [Concomitant]
     Dosage: DOSAGE IS UNCERTAIN.
     Route: 065
     Dates: end: 20130611

REACTIONS (4)
  - Renal failure [Not Recovered/Not Resolved]
  - Cardiac failure [Not Recovered/Not Resolved]
  - Platelet count decreased [Unknown]
  - Pruritus [Unknown]
